FAERS Safety Report 12305390 (Version 3)
Quarter: 2016Q3

REPORT INFORMATION
  Report Type: Spontaneous
  Country: JP (occurrence: JP)
  Receive Date: 20160426
  Receipt Date: 20160810
  Transmission Date: 20161109
  Serious: Yes (Other)
  Sender: FDA-Public Use
  Company Number: JP-TEVA-652682ISR

PATIENT
  Age: 69 Year
  Sex: Male
  Weight: 53 kg

DRUGS (26)
  1. OXINORM [Suspect]
     Active Substance: OXYCODONE HYDROCHLORIDE
     Indication: BREAKTHROUGH PAIN
     Route: 048
     Dates: start: 20150803, end: 20151030
  2. LOXOPROFEN SODIUM HYDRATE [Concomitant]
     Active Substance: LOXOPROFEN SODIUM DIHYDRATE
     Indication: CANCER PAIN
     Dosage: 180 MILLIGRAM DAILY;
     Route: 048
     Dates: start: 20150615, end: 20151028
  3. DECADRON [Concomitant]
     Active Substance: DEXAMETHASONE
     Indication: NAUSEA
     Dosage: 6.6 MILLIGRAM DAILY;
     Route: 042
     Dates: start: 20151007, end: 20151021
  4. FENTOS [Suspect]
     Active Substance: FENTANYL
     Indication: CANCER PAIN
     Dosage: 6 MILLIGRAM DAILY;
     Route: 062
     Dates: start: 20150919, end: 20151001
  5. SENNOSIDE [Concomitant]
     Active Substance: SENNOSIDES
     Dosage: 24 MILLIGRAM DAILY; ONGOING
     Route: 048
  6. IDOMETHINE [Concomitant]
     Active Substance: INDOMETHACIN
     Indication: CANCER PAIN
     Dosage: 35 GRAM DAILY;
     Route: 062
     Dates: start: 20151002, end: 20151002
  7. FENTOS [Suspect]
     Active Substance: FENTANYL
     Dosage: 8 MILLIGRAM DAILY;
     Route: 062
     Dates: start: 20151002, end: 20151018
  8. FENTOS [Suspect]
     Active Substance: FENTANYL
     Dosage: 6 MILLIGRAM DAILY;
     Dates: start: 20151024, end: 20151028
  9. GEMZAR [Suspect]
     Active Substance: GEMCITABINE HYDROCHLORIDE
     Indication: CHEMOTHERAPY
     Dosage: 1.5 GRAM DAILY;
     Route: 041
     Dates: start: 20151007, end: 20151007
  10. TRYPTANOL [Suspect]
     Active Substance: AMITRIPTYLINE
     Indication: CANCER PAIN
     Dosage: 30 MILLIGRAM DAILY;
     Route: 048
     Dates: start: 20150803, end: 20151002
  11. ALOXI [Concomitant]
     Active Substance: PALONOSETRON HYDROCHLORIDE
     Indication: PROPHYLAXIS OF NAUSEA AND VOMITING
     Dosage: .75 MILLIGRAM DAILY;
     Route: 042
     Dates: start: 20151007, end: 20151021
  12. E-FEN BUCCAL [Suspect]
     Active Substance: FENTANYL CITRATE
     Indication: BREAKTHROUGH PAIN
     Dosage: DAILY DOSE: 100-200MICROG
     Route: 002
     Dates: start: 20150926, end: 20151026
  13. FAMOTIDINE D [Concomitant]
     Active Substance: FAMOTIDINE
     Indication: PROPHYLAXIS
     Dosage: 40 MILLIGRAM DAILY; ONGOING
     Route: 048
  14. SHAKUYAKU KANZO TO [Concomitant]
     Dosage: 5 GRAM DAILY; ONGOING
     Route: 048
  15. PANTETHINE [Concomitant]
     Active Substance: PANTETHINE
     Dosage: 1.5 GRAM DAILY; ONGOING
     Route: 048
  16. MAGNESIUM OXIDE. [Concomitant]
     Active Substance: MAGNESIUM OXIDE
     Dosage: 1.5 GRAM DAILY; ONGOING
     Route: 048
  17. NOVAMIN [Concomitant]
     Active Substance: PROCHLORPERAZINE MALEATE
     Indication: NAUSEA
     Dosage: 15 MILLIGRAM DAILY; ONGOING
     Route: 048
     Dates: start: 20151002
  18. LYRICA [Suspect]
     Active Substance: PREGABALIN
     Indication: CANCER PAIN
     Dosage: 300 MILLIGRAM DAILY;
     Route: 048
     Dates: start: 20150803, end: 20151002
  19. FENTOS [Suspect]
     Active Substance: FENTANYL
     Dosage: 10 MILLIGRAM DAILY;
     Route: 062
     Dates: start: 20151019, end: 20151023
  20. GEMZAR [Suspect]
     Active Substance: GEMCITABINE HYDROCHLORIDE
     Dosage: 1.5 GRAM DAILY;
     Route: 041
     Dates: start: 20151014, end: 20151014
  21. GEMZAR [Suspect]
     Active Substance: GEMCITABINE HYDROCHLORIDE
     Dosage: 1.5 GRAM DAILY;
     Route: 041
     Dates: start: 20151021, end: 20151021
  22. REBAMIPIDE [Concomitant]
     Active Substance: REBAMIPIDE
     Dosage: 300 MILLIGRAM DAILY; ONGOING
     Route: 048
  23. MS ONSHIPPU [Concomitant]
     Indication: PAIN
     Dosage: 2 DOSAGE FORMS DAILY; ONGOING
     Route: 062
  24. BIO-THREE [Concomitant]
     Active Substance: HERBALS
     Indication: DYSBACTERIOSIS
     Dosage: 3 DOSAGE FORMS DAILY;
     Route: 048
     Dates: start: 20151014, end: 20151020
  25. NINJINTO [Concomitant]
     Dosage: 5 GRAM DAILY; ONGOING
     Route: 048
  26. PROCESSED ACONITE ROOT [Concomitant]
     Active Substance: ACONITUM NAPELLUS ROOT
     Dosage: 2 GRAM DAILY; ONGOING
     Route: 048

REACTIONS (3)
  - Delirium [Recovered/Resolved]
  - Nausea [Recovered/Resolved]
  - Vomiting [Recovered/Resolved]

NARRATIVE: CASE EVENT DATE: 20151013
